FAERS Safety Report 19200663 (Version 1)
Quarter: 2021Q2

REPORT INFORMATION
  Report Type: Spontaneous
  Country: FR (occurrence: FR)
  Receive Date: 20210430
  Receipt Date: 20210430
  Transmission Date: 20210717
  Serious: Yes (Other)
  Sender: FDA-Public Use
  Company Number: FR-PFIZER INC-2021446334

PATIENT
  Age: 44 Year
  Sex: Male

DRUGS (3)
  1. TRANDATE [Suspect]
     Active Substance: LABETALOL HYDROCHLORIDE
     Dosage: UNK
  2. METHOTREXATE SODIUM. [Suspect]
     Active Substance: METHOTREXATE SODIUM
     Dosage: UNK
  3. NIVAQUINE [CHLOROQUINE SULFATE] [Suspect]
     Active Substance: CHLOROQUINE SULFATE
     Dosage: 2 DF, 1X/DAY

REACTIONS (12)
  - Retinopathy [Unknown]
  - Rash [Unknown]
  - Arthralgia [Unknown]
  - Alopecia [Unknown]
  - Anxiety [Unknown]
  - Visual impairment [Unknown]
  - Maculopathy [Unknown]
  - Overlap syndrome [Unknown]
  - Sjogren^s syndrome [Unknown]
  - Episcleritis [Unknown]
  - Eye naevus [Unknown]
  - Melanocytic naevus [Unknown]
